FAERS Safety Report 24606254 (Version 1)
Quarter: 2024Q4

REPORT INFORMATION
  Report Type: Spontaneous
  Country: GB (occurrence: GB)
  Receive Date: 20241112
  Receipt Date: 20241112
  Transmission Date: 20250115
  Serious: Yes (Hospitalization, Other)
  Sender: TAKEDA
  Company Number: GB-LUNDBECK-DKLU4006345

PATIENT
  Sex: Female

DRUGS (1)
  1. BRINTELLIX [Suspect]
     Active Substance: VORTIOXETINE HYDROBROMIDE
     Indication: Mixed anxiety and depressive disorder
     Dosage: UNK

REACTIONS (4)
  - Ileostomy [Unknown]
  - Mental impairment [Unknown]
  - Suicidal ideation [Unknown]
  - Circumstance or information capable of leading to medication error [Unknown]
